FAERS Safety Report 5302697-0 (Version None)
Quarter: 2007Q2

REPORT INFORMATION
  Report Type: 
  Country: None (occurrence: None)
  Receive Date: 20070419
  Receipt Date: 20070413
  Transmission Date: 20071010
  Serious: Yes (Life-Threatening, Hospitalization)
  Sender: FDA-Public Use
  Company Number: BE-PFIZER INC-2007016999

PATIENT
  Sex: Female
  Weight: 79 kg

DRUGS (10)
  1. SUTENT [Suspect]
     Indication: BREAST CANCER METASTATIC
     Route: 048
     Dates: start: 20061201, end: 20070206
  2. LIPITOR [Concomitant]
     Route: 048
  3. ALDACTONE [Concomitant]
     Route: 048
     Dates: start: 19990101
  4. TEVETEN [Concomitant]
     Route: 048
     Dates: start: 20050801
  5. PAROXETINE [Concomitant]
     Route: 048
     Dates: start: 19990101
  6. ZOLPIDEM [Concomitant]
     Route: 048
     Dates: start: 20060101
  7. DAFALGAN [Concomitant]
     Route: 048
     Dates: start: 20070112
  8. MAALOX FAST BLOCKER [Concomitant]
     Route: 048
     Dates: start: 20070112
  9. ZANTAC [Concomitant]
     Route: 048
     Dates: start: 20070112
  10. LEVOTHYROXINE SODIUM [Concomitant]
     Route: 048

REACTIONS (3)
  - ENTEROCOLITIS [None]
  - PERITONITIS [None]
  - PLEURISY [None]
